FAERS Safety Report 14177038 (Version 1)
Quarter: 2017Q4

REPORT INFORMATION
  Report Type: Spontaneous
  Country: US (occurrence: US)
  Receive Date: 20171110
  Receipt Date: 20171110
  Transmission Date: 20180321
  Serious: Yes (Death)
  Sender: FDA-Public Use
  Company Number: US-CIPLA LTD.-2017US19771

PATIENT

DRUGS (5)
  1. OXALIPLATIN. [Suspect]
     Active Substance: OXALIPLATIN
     Indication: DUCTAL ADENOCARCINOMA OF PANCREAS
     Dosage: 85 MG/M2 OVER 2 HOURS
     Route: 042
  2. PEG-FILGRASTIM [Suspect]
     Active Substance: PEGFILGRASTIM
     Indication: DUCTAL ADENOCARCINOMA OF PANCREAS
     Dosage: 6 MG, ON DAY 3
     Route: 058
  3. LEUCOVORIN. [Suspect]
     Active Substance: LEUCOVORIN
     Indication: DUCTAL ADENOCARCINOMA OF PANCREAS
     Dosage: 400 MG/M2, OVER 2 HOURS
  4. FLUOROURACIL. [Suspect]
     Active Substance: FLUOROURACIL
     Indication: DUCTAL ADENOCARCINOMA OF PANCREAS
     Dosage: 2400 MG/M2,VIA AN AMBULATORY PUMP AS A 46 H CONTINUOUS INFUSION
  5. IRINOTECAN [Suspect]
     Active Substance: IRINOTECAN
     Indication: DUCTAL ADENOCARCINOMA OF PANCREAS
     Dosage: 180 MG/M2, OVER 90-120 MIN VIA A Y CONNECTOR
     Route: 065

REACTIONS (1)
  - Death [Fatal]
